FAERS Safety Report 25118292 (Version 1)
Quarter: 2025Q1

REPORT INFORMATION
  Report Type: Spontaneous
  Country: FR (occurrence: FR)
  Receive Date: 20250325
  Receipt Date: 20250325
  Transmission Date: 20250409
  Serious: Yes (Other)
  Sender: ALEXION PHARMACEUTICALS
  Company Number: None

PATIENT
  Age: 74 Year
  Weight: 85 kg

DRUGS (1)
  1. TICAGRELOR [Suspect]
     Active Substance: TICAGRELOR
     Indication: Thrombosis prophylaxis
     Dosage: 90 MILLIGRAM, QD

REACTIONS (2)
  - Sleep apnoea syndrome [Recovered/Resolved]
  - Condition aggravated [Recovered/Resolved]
